FAERS Safety Report 4377540-7 (Version None)
Quarter: 2004Q2

REPORT INFORMATION
  Report Type: 
  Country: None (occurrence: None)
  Receive Date: 20040608
  Receipt Date: 20040526
  Transmission Date: 20050107
  Serious: Yes (Hospitalization)
  Sender: FDA-Public Use
  Company Number: 2004AP02783

PATIENT
  Age: 74 Year
  Sex: Male

DRUGS (3)
  1. OMEPRAZOLE [Suspect]
     Indication: REFLUX OESOPHAGITIS
     Dosage: 20 MG DAILY PO
     Route: 048
     Dates: start: 20030104, end: 20030124
  2. OMEPRAZOLE [Suspect]
     Indication: REFLUX OESOPHAGITIS
     Dosage: 40 MG DAILY IV
     Route: 042
     Dates: start: 20040124
  3. CIMETIDINE [Concomitant]

REACTIONS (1)
  - OESOPHAGEAL STENOSIS [None]
